FAERS Safety Report 5493061-2 (Version None)
Quarter: 2007Q4

REPORT INFORMATION
  Report Type: 
  Country: None (occurrence: None)
  Receive Date: 20071017
  Receipt Date: 20071003
  Transmission Date: 20080405
  Serious: Yes (Other)
  Sender: FDA-Public Use
  Company Number: 2007332899

PATIENT
  Age: 23 Year
  Sex: Male

DRUGS (9)
  1. BENADRL (DIPHENHYDRAMINE) [Suspect]
     Indication: EXTRAPYRAMIDAL DISORDER
     Dosage: 50 MG EVERY SIX HOURS (50 MG, 1 IN 6 HR); ORAL
     Route: 048
     Dates: start: 20070701
  2. BENADRYL [Suspect]
     Indication: EXTRAPYRAMIDAL DISORDER
     Dosage: 50 MG TWICE (50 MG) INTRAVENOUS
     Route: 042
     Dates: start: 20070709
  3. BENADRYL [Suspect]
     Indication: EXTRAPYRAMIDAL DISORDER
     Dosage: 50 MG EVERY SIX HOURS 50 MG, 1 IN 6 HR); INTRAMUSCULAR
     Route: 030
     Dates: start: 20070701
  4. GEODON [Suspect]
     Indication: SCHIZOPHRENIA
     Dosage: 40 MG DAILY (40 MG, 1 IN 1 D);
     Dates: start: 20070308, end: 20070701
  5. COGENTIN [Suspect]
     Indication: EXTRAPYRAMIDAL DISORDER
     Dosage: 2 MG BID (2 MG, 2 IN 1 D);
     Dates: start: 20070101
  6. ARTANE [Suspect]
     Indication: EXTRAPYRAMIDAL DISORDER
     Dosage: 5 MG TID (5 MG, 3 IN 1 D);
     Dates: start: 20070101
  7. PARAFON FORTE [Suspect]
     Indication: EXTRAPYRAMIDAL DISORDER
     Dosage: 50 MG ONCE (50 MG); INTRAMUSCULAR
     Route: 030
     Dates: start: 20070709
  8. MYSOLINE [Suspect]
     Indication: CHOREA
     Dosage: 250 MG EVERY SIX HOURS (250 MG, 1 IN 6 HR); ORAL
     Route: 048
     Dates: start: 20070726
  9. DRUG, UNSPECIFIED (DRUG, UNSPECIFIED) [Suspect]
     Indication: HYPOTONIA
     Dosage: UNSPECIFIED;
     Dates: start: 20070716

REACTIONS (17)
  - ABASIA [None]
  - ABDOMINAL PAIN [None]
  - AGITATION [None]
  - CHOREA [None]
  - COLITIS ULCERATIVE [None]
  - DIARRHOEA [None]
  - DIZZINESS [None]
  - DYSKINESIA [None]
  - DYSSTASIA [None]
  - MOVEMENT DISORDER [None]
  - NAUSEA [None]
  - NERVOUSNESS [None]
  - RECTAL HAEMORRHAGE [None]
  - RESTLESSNESS [None]
  - TORTICOLLIS [None]
  - VISION BLURRED [None]
  - WEIGHT DECREASED [None]
